FAERS Safety Report 11728268 (Version 3)
Quarter: 2016Q1

REPORT INFORMATION
  Report Type: Spontaneous
  Country: US (occurrence: US)
  Receive Date: 20151112
  Receipt Date: 20160209
  Transmission Date: 20160525
  Serious: No
  Sender: FDA-Public Use
  Company Number: US-PFIZER INC-2015383135

PATIENT
  Age: 73 Year
  Sex: Female
  Weight: 68 kg

DRUGS (18)
  1. LEUCOVORIN CALCIUM. [Concomitant]
     Active Substance: LEUCOVORIN CALCIUM
     Dosage: 5 MG, UNK
  2. AMLODIPINE BESYLATE W/BENAZEPRIL [Concomitant]
     Dosage: 10 MG, UNK (2)
  3. XELJANZ [Suspect]
     Active Substance: TOFACITINIB CITRATE
     Indication: RHEUMATOID ARTHRITIS
     Dosage: 5 MG, 2X/DAY
     Route: 048
     Dates: start: 201510
  4. FLUOXETINE HCL [Concomitant]
     Active Substance: FLUOXETINE HYDROCHLORIDE
     Dosage: 40 MG, UNK
  5. GLIPIZIDE. [Concomitant]
     Active Substance: GLIPIZIDE
     Dosage: 5 MG, UNK
  6. SYNTHROID [Concomitant]
     Active Substance: LEVOTHYROXINE SODIUM
     Dosage: 25 UG, UNK
  7. XELJANZ [Suspect]
     Active Substance: TOFACITINIB CITRATE
     Dosage: 5 MG, 2X/DAY
     Route: 048
     Dates: start: 20150924, end: 20160107
  8. VALACYCLOVIR [Concomitant]
     Active Substance: VALACYCLOVIR HYDROCHLORIDE
     Dosage: 500 MG, UNK
  9. NABUMETONE. [Concomitant]
     Active Substance: NABUMETONE
     Dosage: 750 MG, UNK
  10. METHOTREXATE [Concomitant]
     Active Substance: METHOTREXATE
     Dosage: 2.5 MG, UNK
  11. ASPIRIN (E.C.) [Concomitant]
     Active Substance: ASPIRIN
     Dosage: 81 MG, UNK
  12. DULOXETINE HCL [Concomitant]
     Active Substance: DULOXETINE HYDROCHLORIDE
     Dosage: 60 MG, UNK
  13. RISPERIDONE. [Concomitant]
     Active Substance: RISPERIDONE
     Dosage: 1 MG, UNK
  14. LISINOPRIL AND HYDROCHLOROTHIAZIDE [Concomitant]
     Active Substance: HYDROCHLOROTHIAZIDE\LISINOPRIL
     Dosage: UNK (LISINOPRIL: 20- HYDROCHLORTHIAZID: 12.5)
  15. LORAZEPAM. [Concomitant]
     Active Substance: LORAZEPAM
     Dosage: 1 MG, UNK
  16. PROTONIX [Concomitant]
     Active Substance: PANTOPRAZOLE SODIUM
     Dosage: 40 MG, UNK
  17. QUETIAPINE FUMARATE. [Concomitant]
     Active Substance: QUETIAPINE FUMARATE
     Dosage: 25 MG, UNK
  18. ATENOLOL. [Concomitant]
     Active Substance: ATENOLOL
     Dosage: 50 MG, UNK

REACTIONS (3)
  - Dysstasia [Unknown]
  - Diarrhoea [Recovered/Resolved]
  - Muscular weakness [Unknown]

NARRATIVE: CASE EVENT DATE: 201511
